FAERS Safety Report 6418388-9 (Version None)
Quarter: 2009Q4

REPORT INFORMATION
  Report Type: 
  Country: None (occurrence: None)
  Receive Date: 20091021
  Receipt Date: 20090701
  Transmission Date: 20100525
  Serious: No
  Sender: FDA-Public Use
  Company Number: ALL1-2009-01805

PATIENT
  Age: 19 Year
  Sex: Male
  Weight: 70.3 kg

DRUGS (3)
  1. VYVANSE [Suspect]
     Indication: ATTENTION DEFICIT/HYPERACTIVITY DISORDER
     Dosage: 30 MG, 1X/DAY;QD, ORAL; 40MG, 1X/DAY;QD, ORAL; 60 MG, QX/DAY;QD, ORAL
     Route: 048
     Dates: start: 20090606, end: 20090601
  2. VYVANSE [Suspect]
     Indication: ATTENTION DEFICIT/HYPERACTIVITY DISORDER
     Dosage: 30 MG, 1X/DAY;QD, ORAL; 40MG, 1X/DAY;QD, ORAL; 60 MG, QX/DAY;QD, ORAL
     Route: 048
     Dates: start: 20090506, end: 20090605
  3. VYVANSE [Suspect]
     Indication: ATTENTION DEFICIT/HYPERACTIVITY DISORDER
     Dosage: 30 MG, 1X/DAY;QD, ORAL; 40MG, 1X/DAY;QD, ORAL; 60 MG, QX/DAY;QD, ORAL
     Route: 048
     Dates: start: 20090601

REACTIONS (3)
  - DRUG EFFECT DECREASED [None]
  - INFECTIOUS MONONUCLEOSIS [None]
  - WEIGHT DECREASED [None]
